FAERS Safety Report 15305208 (Version 1)
Quarter: 2018Q3

REPORT INFORMATION
  Report Type: Spontaneous
  Country: FR (occurrence: FR)
  Receive Date: 20180822
  Receipt Date: 20180822
  Transmission Date: 20181010
  Serious: Yes (Hospitalization)
  Sender: FDA-Public Use
  Company Number: FR-TEVA-2018-FR-945564

PATIENT
  Age: 50 Year
  Sex: Male

DRUGS (7)
  1. AUGMENTIN [Suspect]
     Active Substance: AMOXICILLIN\CLAVULANATE POTASSIUM
     Indication: LUNG DISORDER
     Dosage: INCONNUE
     Route: 042
     Dates: start: 20180710, end: 20180717
  2. NIMBEX [Concomitant]
     Active Substance: CISATRACURIUM BESYLATE
     Indication: NEUROMUSCULAR BLOCKING THERAPY
     Dosage: INCONNUE
     Dates: start: 20180704
  3. MIDAZOLAM [Concomitant]
     Active Substance: MIDAZOLAM HYDROCHLORIDE
     Indication: SEDATION
     Dosage: INCONNUE
     Route: 041
     Dates: start: 20180704
  4. PANTOPRAZOLE [Suspect]
     Active Substance: PANTOPRAZOLE
     Indication: PROPHYLAXIS
     Dosage: INCONNUE
     Route: 042
     Dates: start: 20180714, end: 20180718
  5. SUFENTANIL [Concomitant]
     Active Substance: SUFENTANIL
     Indication: SEDATION
     Dosage: INCONNUE
     Dates: start: 20180704
  6. TIENAM [Suspect]
     Active Substance: CILASTATIN SODIUM\IMIPENEM
     Indication: LUNG DISORDER
     Route: 042
     Dates: start: 20180714, end: 20180719
  7. PENTOTHAL [Concomitant]
     Active Substance: THIOPENTAL SODIUM
     Indication: SEDATION
     Dosage: INCONNUE
     Dates: start: 20180705, end: 20180711

REACTIONS (1)
  - Neutropenia [Recovered/Resolved]

NARRATIVE: CASE EVENT DATE: 20180722
